FAERS Safety Report 4302925-4 (Version None)
Quarter: 2004Q1

REPORT INFORMATION
  Report Type: 
  Country: None (occurrence: None)
  Receive Date: 20040223
  Receipt Date: 20040223
  Transmission Date: 20041129
  Serious: Yes (Other)
  Sender: FDA-Public Use
  Company Number: None

PATIENT
  Age: 23 Year
  Weight: 56.246 kg

DRUGS (1)
  1. ZOLOFT [Suspect]
     Indication: ANXIETY
     Dosage: 2 1  ORAL
     Route: 048
     Dates: start: 20031220, end: 20040219

REACTIONS (2)
  - EMOTIONAL DISORDER [None]
  - HOSTILITY [None]
